FAERS Safety Report 19941298 (Version 2)
Quarter: 2022Q1

REPORT INFORMATION
  Report Type: Other
  Country: CA (occurrence: CA)
  Receive Date: 20211012
  Receipt Date: 20220321
  Transmission Date: 20220424
  Serious: Yes (Other)
  Sender: FDA-Public Use
  Company Number: CA-CELLTRION INC.-2021CA013585

PATIENT

DRUGS (14)
  1. RITUXIMAB [Suspect]
     Active Substance: RITUXIMAB
     Indication: Transplant rejection
     Route: 065
  2. ACTEMRA [Suspect]
     Active Substance: TOCILIZUMAB
     Indication: Kidney transplant rejection
     Dosage: 368 MILLIGRAM, 1 EVERY 4 WEEKS
     Route: 042
  3. ATORVASTATIN [Concomitant]
     Active Substance: ATORVASTATIN
     Route: 048
  4. ENALAPRIL [Concomitant]
     Active Substance: ENALAPRIL
  5. LANTUS [Concomitant]
     Active Substance: INSULIN GLARGINE
  6. MAGNESIUM [Concomitant]
     Active Substance: MAGNESIUM
  7. MYCOPHENOLATE SODIUM [Concomitant]
     Active Substance: MYCOPHENOLATE SODIUM
  8. NOVORAPID [Concomitant]
     Active Substance: INSULIN ASPART
  9. PREDNISONE [Concomitant]
     Active Substance: PREDNISONE
  10. PROZAC [Concomitant]
     Active Substance: FLUOXETINE HYDROCHLORIDE
  11. SEPTRA [Concomitant]
     Active Substance: SULFAMETHOXAZOLE\TRIMETHOPRIM
  12. TACROLIMUS [Concomitant]
     Active Substance: TACROLIMUS
  13. URSODIOL [Concomitant]
     Active Substance: URSODIOL
  14. VITAMIN B2 [Concomitant]
     Active Substance: RIBOFLAVIN

REACTIONS (4)
  - Donor specific antibody present [Unknown]
  - Transplant rejection [Unknown]
  - Off label use [Unknown]
  - Off label use [Unknown]
